FAERS Safety Report 5930494-1 (Version None)
Quarter: 2008Q4

REPORT INFORMATION
  Report Type: 
  Country: None (occurrence: None)
  Receive Date: 20081026
  Receipt Date: 20080924
  Transmission Date: 20090506
  Serious: Yes (Death)
  Sender: FDA-Public Use
  Company Number: PHBS2008CA06070

PATIENT
  Age: 4 Year
  Sex: Male

DRUGS (1)
  1. PROLEUKIN [Suspect]

REACTIONS (1)
  - OVERDOSE [None]
